FAERS Safety Report 6287122-8 (Version None)
Quarter: 2009Q3

REPORT INFORMATION
  Report Type: 
  Country: None (occurrence: None)
  Receive Date: 20090728
  Receipt Date: 20090722
  Transmission Date: 20100115
  Serious: Yes (Other)
  Sender: FDA-Public Use
  Company Number: BR-ASTRAZENECA-2009UW21127

PATIENT
  Age: 0 Day
  Sex: Male
  Weight: 3.6 kg

DRUGS (1)
  1. XYLOPROCT [Suspect]
     Route: 064
     Dates: start: 20090330, end: 20090401

REACTIONS (1)
  - JAUNDICE [None]
